FAERS Safety Report 4337222-4 (Version None)
Quarter: 2004Q1

REPORT INFORMATION
  Report Type: 
  Country: None (occurrence: None)
  Receive Date: 20040331
  Receipt Date: 20031204
  Transmission Date: 20041129
  Serious: Yes (Hospitalization)
  Sender: FDA-Public Use
  Company Number: 137491USA

PATIENT
  Age: 53 Year
  Sex: Female
  Weight: 55.7924 kg

DRUGS (2)
  1. MINOCYCLINE HCL [Suspect]
     Indication: ROSACEA
     Dosage: 50 MILLIGRAMQD ORAL
     Route: 048
     Dates: start: 20030501, end: 20030626
  2. HORMONES [Concomitant]

REACTIONS (11)
  - ALOPECIA [None]
  - DRUG HYPERSENSITIVITY [None]
  - DYSPNOEA [None]
  - HYPERHIDROSIS [None]
  - LIVER FUNCTION TEST ABNORMAL [None]
  - LUPUS-LIKE SYNDROME [None]
  - PHOTOSENSITIVITY REACTION [None]
  - PRURITUS [None]
  - RASH [None]
  - STEVENS-JOHNSON SYNDROME [None]
  - TOOTH LOSS [None]
